FAERS Safety Report 9232958 (Version 1)
Quarter: 2013Q2

REPORT INFORMATION
  Report Type: Spontaneous
  Country: US (occurrence: None)
  Receive Date: 20130415
  Receipt Date: 20130415
  Transmission Date: 20140414
  Serious: Yes (Disabling, Other)
  Sender: FDA-Public Use
  Company Number: None

PATIENT
  Age: 52 Year
  Sex: Male
  Weight: 172 kg

DRUGS (4)
  1. PROPECIA [Suspect]
     Indication: PROPHYLAXIS
     Route: 048
     Dates: start: 19980101, end: 20010101
  2. PROPECIA [Suspect]
     Indication: ALOPECIA
     Route: 048
     Dates: start: 19980101, end: 20010101
  3. PROSCAR [Suspect]
     Indication: PROPHYLAXIS
     Route: 048
     Dates: start: 20010101, end: 20010101
  4. PROSCAR [Suspect]
     Indication: ALOPECIA
     Route: 048
     Dates: start: 20010101, end: 20010101

REACTIONS (7)
  - Sexual dysfunction [None]
  - Anxiety [None]
  - Insomnia [None]
  - Cognitive disorder [None]
  - Self-medication [None]
  - Alcoholism [None]
  - Stress [None]
